FAERS Safety Report 15425167 (Version 1)
Quarter: 2018Q3

REPORT INFORMATION
  Report Type: Spontaneous
  Country: FR (occurrence: FR)
  Receive Date: 20180925
  Receipt Date: 20180925
  Transmission Date: 20181010
  Serious: Yes (Hospitalization, Other)
  Sender: FDA-Public Use
  Company Number: FR-MYLANLABS-2018M1069559

PATIENT
  Age: 55 Year
  Sex: Male
  Weight: 83 kg

DRUGS (2)
  1. PIPERACILLIN AND TAZOBACTAM [Suspect]
     Active Substance: PIPERACILLIN SODIUM\TAZOBACTAM SODIUM
     Indication: MEDIASTINITIS
     Dosage: UNK
     Route: 042
  2. VANCOMYCIN MYLAN [Suspect]
     Active Substance: VANCOMYCIN
     Indication: MEDIASTINITIS
     Dosage: 2 G, Q3H
     Route: 042

REACTIONS (6)
  - Inappropriate schedule of drug administration [Unknown]
  - Rash erythematous [Not Recovered/Not Resolved]
  - Eosinophilia [Not Recovered/Not Resolved]
  - Acute kidney injury [Recovering/Resolving]
  - Lymphadenopathy [Not Recovered/Not Resolved]
  - Antibiotic level above therapeutic [Recovering/Resolving]

NARRATIVE: CASE EVENT DATE: 20180419
